APPROVED DRUG PRODUCT: LORATADINE
Active Ingredient: LORATADINE
Strength: 1MG/ML
Dosage Form/Route: SYRUP;ORAL
Application: A208931 | Product #001
Applicant: AUROBINDO PHARMA LTD
Approved: Jun 29, 2018 | RLD: No | RS: No | Type: OTC